FAERS Safety Report 21127385 (Version 1)
Quarter: 2022Q3

REPORT INFORMATION
  Report Type: Spontaneous
  Country: US (occurrence: None)
  Receive Date: 20220725
  Receipt Date: 20220725
  Transmission Date: 20221026
  Serious: Yes (Death)
  Sender: FDA-Public Use
  Company Number: None

PATIENT
  Sex: Male

DRUGS (36)
  1. VITAMIN D3 [Suspect]
     Active Substance: CHOLECALCIFEROL
     Indication: Cystic fibrosis
     Dosage: 50 MCG (2000UT) ?TAKE 1 CAPSULE (2,000 UNITS TOTQL) BY MOUTH 1 TIME A DAY.
     Route: 048
     Dates: start: 20220409
  2. VITAMIN D3 [Suspect]
     Active Substance: CHOLECALCIFEROL
     Dosage: FREQUENCY : DAILY;?
     Route: 048
  3. ACETYLCYST [Concomitant]
  4. ALBUTEROL SULFATE [Concomitant]
     Active Substance: ALBUTEROL SULFATE
  5. ALVESCP AER [Concomitant]
  6. ASPIRIN [Concomitant]
     Active Substance: ASPIRIN
  7. AYR SALINE KIT NETI RNS [Concomitant]
  8. AZITHROMYCIN [Concomitant]
     Active Substance: AZITHROMYCIN
  9. BETHANECHOL POW CHLROIDE [Concomitant]
  10. CALCIUM [Concomitant]
  11. CLINDAMYCIN HYDROCHLORIDE [Concomitant]
     Active Substance: CLINDAMYCIN HYDROCHLORIDE
  12. CREON [Concomitant]
     Active Substance: PANCRELIPASE AMYLASE\PANCRELIPASE LIPASE\PANCRELIPASE PROTEASE
  13. DULERA AER [Concomitant]
  14. DUOCAL POW [Concomitant]
  15. ENSURE ACTIV LIQ HP [Concomitant]
  16. FERROUS SULF [Concomitant]
  17. SACCHAROMYCES CEREVISIAE [Concomitant]
     Active Substance: SACCHAROMYCES CEREVISIAE
  18. FLUICASONE SPR [Concomitant]
  19. GAS RELIEF CHW [Concomitant]
  20. IMIPENEM/CIL [Concomitant]
  21. LINEZOLID [Concomitant]
  22. MOMETASONME SPR [Concomitant]
  23. OMEPRAZOLE [Concomitant]
     Active Substance: OMEPRAZOLE
  24. PARI LC PLUS MIS NEBULIZR [Concomitant]
  25. PEDIASURE LIQ BANANA [Concomitant]
  26. PEG 3350 POW [Concomitant]
  27. PULMOZYME SOL [Concomitant]
  28. PYRIDOSTIGMI [Concomitant]
  29. PYRIDOSTIGMINE BROMIDE [Concomitant]
     Active Substance: PYRIDOSTIGMINE BROMIDE
  30. SENNA [Concomitant]
     Active Substance: SENNA LEAF\SENNOSIDES\SENNOSIDES A AND B
  31. SILDENAFIL [Concomitant]
     Active Substance: SILDENAFIL
  32. SIRTURO [Concomitant]
     Active Substance: BEDAQUILINE FUMARATE
  33. SODIUM CHLORIDE [Concomitant]
     Active Substance: SODIUM CHLORIDE
  34. TIGECYCLINE [Concomitant]
  35. VITAMIN A [Concomitant]
  36. VITAMIN D3 [Concomitant]
     Active Substance: CHOLECALCIFEROL

REACTIONS (1)
  - Death [None]
